FAERS Safety Report 12261263 (Version 1)
Quarter: 2016Q2

REPORT INFORMATION
  Report Type: Report from Study
  Country: US (occurrence: US)
  Receive Date: 20160412
  Receipt Date: 20160412
  Transmission Date: 20160815
  Serious: Yes (Other)
  Sender: FDA-Public Use
  Company Number: US-BAUSCH-BL-2016-008098

PATIENT
  Age: 43 Year
  Sex: Male

DRUGS (1)
  1. METFORMIN [Suspect]
     Active Substance: METFORMIN HYDROCHLORIDE
     Indication: TYPE 2 DIABETES MELLITUS
     Dosage: DURATION GREATER THAN 12 MONTHS
     Route: 065

REACTIONS (2)
  - Neuroendocrine tumour [Unknown]
  - Small cell lung cancer [Unknown]
